FAERS Safety Report 16946313 (Version 2)
Quarter: 2022Q4

REPORT INFORMATION
  Report Type: Spontaneous
  Country: KZ (occurrence: KZ)
  Receive Date: 20191022
  Receipt Date: 20221201
  Transmission Date: 20230112
  Serious: Yes (Other)
  Sender: FDA-Public Use
  Company Number: KZ-NOVARTISPH-NVSC2019KZ012442

PATIENT
  Age: 70 Year
  Sex: Male

DRUGS (2)
  1. SIMBRINZA [Suspect]
     Active Substance: BRIMONIDINE TARTRATE\BRINZOLAMIDE
     Indication: Open angle glaucoma
     Dosage: 5 ML, BID
     Route: 047
     Dates: start: 201802, end: 201802
  2. SIMBRINZA [Suspect]
     Active Substance: BRIMONIDINE TARTRATE\BRINZOLAMIDE
     Indication: Ocular hypertension

REACTIONS (2)
  - Tachycardia [Unknown]
  - Taste disorder [Unknown]
